FAERS Safety Report 14317865 (Version 4)
Quarter: 2025Q2

REPORT INFORMATION
  Report Type: Spontaneous
  Country: GB (occurrence: GB)
  Receive Date: 20171222
  Receipt Date: 20250502
  Transmission Date: 20250716
  Serious: Yes (Other)
  Sender: JOHNSON AND JOHNSON
  Company Number: None

PATIENT
  Age: 24 Year
  Sex: Male

DRUGS (8)
  1. RISPERIDONE [Suspect]
     Active Substance: RISPERIDONE
     Indication: Autism spectrum disorder
     Route: 065
  2. RISPERIDONE [Suspect]
     Active Substance: RISPERIDONE
  3. RISPERIDONE [Suspect]
     Active Substance: RISPERIDONE
  4. RISPERIDONE [Suspect]
     Active Substance: RISPERIDONE
  5. RISPERIDONE [Suspect]
     Active Substance: RISPERIDONE
  6. RISPERIDONE [Suspect]
     Active Substance: RISPERIDONE
  7. METHYLPHENIDATE HYDROCHLORIDE [Suspect]
     Active Substance: METHYLPHENIDATE HYDROCHLORIDE
     Indication: Autism spectrum disorder
     Route: 065
  8. ABILIFY [Suspect]
     Active Substance: ARIPIPRAZOLE
     Indication: Autism spectrum disorder
     Route: 065

REACTIONS (5)
  - Keratoconus [Unknown]
  - Dry eye [Unknown]
  - Product use in unapproved indication [Unknown]
  - Rash [Unknown]
  - Off label use [Unknown]
